FAERS Safety Report 5741769-3 (Version None)
Quarter: 2008Q2

REPORT INFORMATION
  Report Type: 
  Country: None (occurrence: None)
  Receive Date: 20080519
  Receipt Date: 20070130
  Transmission Date: 20081010
  Serious: No
  Sender: FDA-Public Use
  Company Number: US-BAYER-US-2007-003234

PATIENT
  Age: 47 Year
  Sex: Female
  Weight: 160 kg

DRUGS (4)
  1. ULTRAVIST 300 [Suspect]
     Indication: COMPUTERISED TOMOGRAM ABDOMEN
     Dosage: UNIT DOSE: 96 ML
     Route: 042
     Dates: start: 20070130, end: 20070130
  2. READI-CAT [Concomitant]
     Route: 048
  3. KLONOPIN [Concomitant]
  4. HYDROCODONE BITARTRATE [Concomitant]

REACTIONS (2)
  - PRURITUS [None]
  - URTICARIA [None]
